FAERS Safety Report 6203989-3 (Version None)
Quarter: 2009Q2

REPORT INFORMATION
  Report Type: 
  Country: None (occurrence: None)
  Receive Date: 20090518
  Receipt Date: 20090304
  Transmission Date: 20091009
  Serious: No
  Sender: FDA-Public Use
  Company Number: WAES 0903USA00714

PATIENT
  Sex: Male

DRUGS (3)
  1. JANUVIA [Suspect]
     Dosage: PO
     Route: 048
     Dates: start: 20090101
  2. ADVIL [Concomitant]
  3. AMARYL [Concomitant]

REACTIONS (1)
  - ABDOMINAL DISCOMFORT [None]
